FAERS Safety Report 9433758 (Version 1)
Quarter: 2013Q3

REPORT INFORMATION
  Report Type: Spontaneous
  Country: GB (occurrence: None)
  Receive Date: 20130729
  Receipt Date: 20130729
  Transmission Date: 20140515
  Serious: Yes (Hospitalization)
  Sender: FDA-Public Use
  Company Number: 1809405

PATIENT
  Age: 68 Year
  Sex: Female
  Weight: 46 kg

DRUGS (21)
  1. CIPROFLOXACIN [Suspect]
     Indication: PRODUCT USED FOR UNKNOWN INDICATION
     Dates: start: 20130611, end: 20130616
  2. DILTIAZEM HYDROCHLORIDE [Concomitant]
  3. ISOSORBIDE MONONITRATE [Concomitant]
  4. HYDROCORTISONE [Concomitant]
  5. BUDESONIDE [Concomitant]
  6. CARBOCISTEINE [Concomitant]
  7. LANSOPRAZOLE [Concomitant]
  8. SALBUTAMOL [Concomitant]
  9. TIOTROPIUM [Concomitant]
  10. TRAMADOL [Concomitant]
  11. SALBUTAMOL [Concomitant]
  12. ASPIRIN [Concomitant]
  13. AMOXICILLIN [Concomitant]
  14. PREDNISOLONE [Concomitant]
  15. NYSTATIN [Concomitant]
  16. ATORVASTATIN [Concomitant]
  17. CALCIUM CARBONATE [Concomitant]
  18. DOXYCYCLINE [Concomitant]
  19. CITRIC ACID MONOHYDRATE [Concomitant]
  20. CLOPIDOGREL [Concomitant]
  21. IPRATROPIUM BROMIDE [Concomitant]

REACTIONS (1)
  - Tenosynovitis [None]
